FAERS Safety Report 5291362-4 (Version None)
Quarter: 2007Q2

REPORT INFORMATION
  Report Type: 
  Country: None (occurrence: None)
  Receive Date: 20070402
  Receipt Date: 20070321
  Transmission Date: 20071010
  Serious: Yes (Other)
  Sender: FDA-Public Use
  Company Number: 16087

PATIENT
  Age: 65 Year
  Sex: Female
  Weight: 50 kg

DRUGS (1)
  1. PACLITAXEL [Suspect]
     Indication: BREAST CANCER
     Dosage: 80 MG/M2 PER_CYCLE; IV
     Route: 042
     Dates: start: 20070216, end: 20070216

REACTIONS (3)
  - ABDOMINAL PAIN [None]
  - BRONCHOSPASM [None]
  - TACHYPNOEA [None]
